FAERS Safety Report 8793221 (Version 1)
Quarter: 2012Q4

REPORT INFORMATION
  Report Type: 
  Country: GB (occurrence: GB)
  Receive Date: 20120918
  Receipt Date: 20120918
  Transmission Date: 20130627
  Serious: Yes (Hospitalization)
  Sender: FDA-Public Use
  Company Number: GB-BAUSCH-BL-2012-000861

PATIENT
  Age: 74 Year
  Sex: Male

DRUGS (16)
  1. PREDNISOLONE [Suspect]
     Indication: PROSTATE CANCER METASTATIC
  2. NO DRUG NAME [Concomitant]
     Indication: PROSTATE CANCER METASTATIC
  3. NO DRUG NAME [Concomitant]
     Indication: MYOCARDIAL ISCHAEMIA
  4. NO DRUG NAME [Concomitant]
     Indication: BLOOD CHOLESTEROL
  5. NO DRUG NAME [Concomitant]
     Indication: MYOCARDIAL ISCHAEMIA
  6. NO DRUG NAME [Concomitant]
     Indication: PROSTATE CANCER METASTATIC
  7. NO DRUG NAME [Concomitant]
     Indication: MYOCARDIAL ISCHAEMIA
  8. NO DRUG NAME [Concomitant]
     Indication: DIABETES MELLITUS
  9. NO DRUG NAME [Concomitant]
     Indication: PROSTATE CANCER METASTATIC
  10. NO DRUG NAME [Concomitant]
     Indication: DIABETES MELLITUS
  11. NO DRUG NAME [Concomitant]
     Indication: PROPHYLAXIS
  12. NO DRUG NAME [Concomitant]
     Indication: MYOCARDIAL ISCHAEMIA
  13. NO DRUG NAME [Concomitant]
  14. NO DRUG NAME [Concomitant]
     Indication: CHEMOTHERAPY
  15. NO DRUG NAME [Concomitant]
     Indication: PROSTATE CANCER
  16. NO DRUG NAME [Concomitant]
     Indication: PROSTATE CANCER

REACTIONS (2)
  - Injury [Recovered/Resolved]
  - Rib fracture [Recovered/Resolved]
